FAERS Safety Report 24016762 (Version 1)
Quarter: 2024Q2

REPORT INFORMATION
  Report Type: Spontaneous
  Country: GB (occurrence: GB)
  Receive Date: 20240626
  Receipt Date: 20240626
  Transmission Date: 20240716
  Serious: Yes (Hospitalization, Other)
  Sender: FDA-Public Use
  Company Number: GB-002147023-NVSC2024GB131543

PATIENT
  Age: 87 Year
  Sex: Male

DRUGS (1)
  1. LEQVIO [Suspect]
     Active Substance: INCLISIRAN SODIUM
     Indication: Product used for unknown indication
     Dosage: UNK
     Route: 065
     Dates: start: 202402

REACTIONS (4)
  - Drug-induced liver injury [Recovering/Resolving]
  - Liver function test increased [Recovering/Resolving]
  - Osteomyelitis [Recovering/Resolving]
  - Hepatic function abnormal [Unknown]
